FAERS Safety Report 17652041 (Version 1)
Quarter: 2020Q2

REPORT INFORMATION
  Report Type: Spontaneous
  Country: CA (occurrence: CA)
  Receive Date: 20200409
  Receipt Date: 20200409
  Transmission Date: 20200713
  Serious: Yes (Other)
  Sender: FDA-Public Use
  Company Number: CA-ADVANZ PHARMA-201909000624

PATIENT

DRUGS (18)
  1. METHOTREXATE. [Suspect]
     Active Substance: METHOTREXATE
     Indication: PRODUCT USED FOR UNKNOWN INDICATION
     Route: 065
  2. PYRIDOXINE HYDROCHLORIDE. [Suspect]
     Active Substance: PYRIDOXINE HYDROCHLORIDE
     Dosage: UNK
     Route: 065
  3. XARELTO [Concomitant]
     Active Substance: RIVAROXABAN
     Dosage: UNK
  4. CALCIUM [Concomitant]
     Active Substance: CALCIUM
     Dosage: UNK
  5. VITAMIN B6 [Concomitant]
     Active Substance: PYRIDOXINE HYDROCHLORIDE
     Dosage: UNK
  6. LASIX [Concomitant]
     Active Substance: FUROSEMIDE
     Dosage: UNK
  7. FISH OIL [Concomitant]
     Active Substance: FISH OIL
     Dosage: UNK
  8. BUPRENORPHINE. [Concomitant]
     Active Substance: BUPRENORPHINE
     Dosage: UNK
  9. PREDNISONE. [Concomitant]
     Active Substance: PREDNISONE
     Dosage: UNK
  10. MAGNESIUM [Concomitant]
     Active Substance: MAGNESIUM
     Dosage: UNK
  11. RAMIPRIL. [Concomitant]
     Active Substance: RAMIPRIL
     Dosage: UNK
  12. VITAMIN D [Concomitant]
     Active Substance: VITAMIN D NOS
     Dosage: UNK
  13. HYDROXYCHLOROQUINE [Suspect]
     Active Substance: HYDROXYCHLOROQUINE
     Indication: PRODUCT USED FOR UNKNOWN INDICATION
     Dosage: UNK
     Route: 065
     Dates: end: 201904
  14. VITAMIN B12 [Concomitant]
     Active Substance: CYANOCOBALAMIN
     Dosage: UNK
  15. BISOPROLOL [Concomitant]
     Active Substance: BISOPROLOL
     Dosage: UNK
  16. XELJANZ [Concomitant]
     Active Substance: TOFACITINIB CITRATE
     Indication: RHEUMATOID ARTHRITIS
     Dosage: UNK
     Dates: start: 20191001
  17. ARAVA [Concomitant]
     Active Substance: LEFLUNOMIDE
  18. ARAVA [Suspect]
     Active Substance: LEFLUNOMIDE
     Indication: PRODUCT USED FOR UNKNOWN INDICATION
     Dosage: UNK
     Route: 065

REACTIONS (7)
  - Cardiomyopathy [Unknown]
  - Drug ineffective [Unknown]
  - Hypersensitivity [Unknown]
  - Neuropathy peripheral [Unknown]
  - Myelopathy [Unknown]
  - Depression [Unknown]
  - Drug intolerance [Unknown]

NARRATIVE: CASE EVENT DATE: 2010
